FAERS Safety Report 7537523-2 (Version None)
Quarter: 2011Q2

REPORT INFORMATION
  Report Type: 
  Country: None (occurrence: None)
  Receive Date: 20110609
  Receipt Date: 20070404
  Transmission Date: 20111010
  Serious: Yes (Death)
  Sender: FDA-Public Use
  Company Number: PHMT2007CA00898

PATIENT
  Sex: Female

DRUGS (7)
  1. ARICEPT [Concomitant]
     Dosage: UNKNOWN
  2. RESTORIL [Concomitant]
     Dosage: UNKNOWN
  3. TYLENOL-500 [Concomitant]
     Dosage: UNK, PRN
  4. CLOZAPINE [Suspect]
     Indication: HALLUCINATION
     Dosage: 75 MG, UNK
     Route: 048
     Dates: start: 20010809
  5. SINEMET [Concomitant]
     Dosage: UNKNOWN
  6. PAXIL [Concomitant]
     Dosage: UNKNOWN
  7. COMTAN [Concomitant]
     Dosage: UNKNOWN

REACTIONS (1)
  - DEATH [None]
